FAERS Safety Report 8654565 (Version 2)
Quarter: 2012Q4

REPORT INFORMATION
  Report Type: Spontaneous
  Country: GB (occurrence: None)
  Receive Date: 20120622
  Receipt Date: 20120924
  Transmission Date: 20130627
  Serious: Yes (Hospitalization)
  Sender: FDA-Public Use
  Company Number: 2012-00896

PATIENT
  Age: 41 Year
  Sex: Female

DRUGS (5)
  1. CEFTRIAXONE [Suspect]
     Indication: DRUG USE FOR UNKNOWN INDICATION
     Route: 042
     Dates: start: 20120504
  2. SULFAMETHOXAZOLE AND TRIMETHOPRIM [Suspect]
     Indication: PNEUMOCYSTIS PNEUMONIA
     Dosage: (864 MG, 2 IN 1 D)
     Route: 042
     Dates: start: 20120504
  3. IRON (FERROUS SULPHATE) [Concomitant]
  4. AMOXYCILLIN (AMOXICILLIN) [Concomitant]
  5. CLARITHROMYCIN [Concomitant]

REACTIONS (4)
  - Acute psychosis [None]
  - Aggression [None]
  - Confusional state [None]
  - Pneumococcal infection [None]
